FAERS Safety Report 26172892 (Version 1)
Quarter: 2025Q4

REPORT INFORMATION
  Report Type: Report from Study
  Country: EU (occurrence: None)
  Receive Date: 20251218
  Receipt Date: 20251218
  Transmission Date: 20260117
  Serious: Yes (Other)
  Sender: NORMON
  Company Number: None

PATIENT
  Age: 49 Year
  Sex: Female

DRUGS (8)
  1. LEVOTHYROXINE SODIUM [Interacting]
     Active Substance: LEVOTHYROXINE SODIUM
     Dosage: 1 CADA 24 HORAS
     Dates: start: 20250121
  2. FLATORIL 500 microgramos/200 mg CAPSULAS DURAS [Concomitant]
     Dosage: 1 CADA 12 HORAS
     Dates: start: 20240227
  3. ENALAPRIL CINFA 20 mg COMPRIMIDOS EFG, 28 comprimidos [Concomitant]
     Indication: Hypertension
     Dosage: 1 CADA 24 HORAS
     Dates: start: 20240125
  4. PLENUR 400 MG COMPRIMIDOS DE LIBERACION MODIFICADA, 100 comprimidos [Concomitant]
     Indication: Bipolar disorder
     Dosage: 1 CADA 24 HORAS
     Dates: start: 20221128
  5. Lamotrigina Normon 50 mg comprimidos dispersables/masticables EFG [Concomitant]
     Dosage: 1 CADA 24 HORAS
     Dates: start: 20220207
  6. LAMICTAL 100 mg COMPRIMIDOS MASTICABLES/DISPERSABLES , 56 comprimidos [Concomitant]
     Indication: Epilepsy
     Dosage: 1 CADA 24 HORAS
     Dates: start: 20220126
  7. QUETIAPINA CINFA 300 mg COMPRIMIDOS [Concomitant]
     Dosage: 1 CADA 24 HORAS
     Dates: start: 20230614
  8. PANTOPRAZOLE SODIUM [Interacting]
     Active Substance: PANTOPRAZOLE SODIUM
     Dosage: 1 CADA 24 HORAS
     Dates: start: 20240227

REACTIONS (1)
  - Hyperthyroidism [Recovering/Resolving]

NARRATIVE: CASE EVENT DATE: 20250520
